FAERS Safety Report 9355584 (Version 1)
Quarter: 2013Q2

REPORT INFORMATION
  Report Type: Spontaneous
  Country: US (occurrence: None)
  Receive Date: 20130618
  Receipt Date: 20130618
  Transmission Date: 20140414
  Serious: No
  Sender: FDA-Public Use
  Company Number: None

PATIENT
  Sex: Female
  Weight: 74.84 kg

DRUGS (2)
  1. PROLIA INJECTION-AMGEN [Suspect]
     Indication: OSTEOPOROSIS
     Dates: start: 20121024
  2. PROLIA [Suspect]

REACTIONS (12)
  - Muscle spasms [None]
  - Muscle spasms [None]
  - Headache [None]
  - Gastrooesophageal reflux disease [None]
  - Pain in jaw [None]
  - Frequent bowel movements [None]
  - Pollakiuria [None]
  - Decreased appetite [None]
  - Ulcer [None]
  - Hernia [None]
  - Blood calcium decreased [None]
  - Blood parathyroid hormone increased [None]
